FAERS Safety Report 8553906 (Version 2)
Quarter: 2014Q3

REPORT INFORMATION
  Report Type: Spontaneous
  Country: US (occurrence: US)
  Receive Date: 20120509
  Receipt Date: 20140924
  Transmission Date: 20150326
  Serious: Yes (Other)
  Sender: FDA-Public Use
  Company Number: US-ROCHE-1035112

PATIENT
  Age: 23 Year
  Sex: Male
  Weight: 83.99 kg

DRUGS (1)
  1. ACCUTANE [Suspect]
     Active Substance: ISOTRETINOIN
     Indication: ACNE CYSTIC
     Route: 048
     Dates: start: 19910820, end: 19920205

REACTIONS (9)
  - Proctitis [Unknown]
  - Dry eye [Unknown]
  - Inflammatory bowel disease [Unknown]
  - Dry skin [Unknown]
  - Crohn^s disease [Unknown]
  - Anxiety [Unknown]
  - Depression [Unknown]
  - Lip dry [Unknown]
  - Hepatic enzyme increased [Unknown]

NARRATIVE: CASE EVENT DATE: 19910910
